FAERS Safety Report 7734135-2 (Version None)
Quarter: 2011Q3

REPORT INFORMATION
  Report Type: 
  Country: None (occurrence: None)
  Receive Date: 20110901
  Receipt Date: 20110817
  Transmission Date: 20111222
  Serious: Yes (Life-Threatening, Hospitalization, Disabling, Other)
  Sender: FDA-Public Use
  Company Number: AUR-APL-2010-00330

PATIENT
  Age: 29 Year
  Sex: Female
  Weight: 55 kg

DRUGS (4)
  1. MIRTAZAPINE [Suspect]
     Indication: OVERDOSE
     Dosage: 28 DOSAGE FORMS (28 DOSAGE FORMS, 1 IN 1 D0
     Dates: start: 20050118, end: 20050119
  2. MIRTAZAPINE [Suspect]
     Indication: DEPRESSION
     Dosage: 28 DOSAGE FORMS (28 DOSAGE FORMS, 1 IN 1 D0
     Dates: start: 20050118, end: 20050119
  3. ACETAMINOPHEN [Suspect]
     Indication: PRODUCT USED FOR UNKNOWN INDICATION
     Dosage: 6 DOSAGE FORMS (6 DOSAGE FORMS, 1 IN 1 D)
  4. ZOPICLONE (ZOPICLONE) [Concomitant]

REACTIONS (2)
  - HEPATIC FAILURE [None]
  - MULTIPLE DRUG OVERDOSE [None]
